FAERS Safety Report 9872292 (Version 4)
Quarter: 2014Q1

REPORT INFORMATION
  Report Type: Report from Study
  Country: CA (occurrence: CA)
  Receive Date: 20140205
  Receipt Date: 20140321
  Transmission Date: 20141002
  Serious: Yes (Other)
  Sender: FDA-Public Use
  Company Number: PHHY2013CA026416

PATIENT
  Age: 65 Year
  Sex: Male

DRUGS (3)
  1. SANDOSTATIN LAR [Suspect]
     Indication: CARCINOID TUMOUR
     Dosage: 20 MG, EVERY 4 WEEKS
     Route: 030
     Dates: start: 20120817
  2. SANDOSTATIN LAR [Suspect]
     Indication: PROSTATE CANCER
     Dosage: 30 MG, EVERY 4 WEEKS
     Route: 030
  3. SANDOSTATIN LAR [Suspect]
     Indication: OFF LABEL USE

REACTIONS (8)
  - Prostate cancer [Unknown]
  - Second primary malignancy [Unknown]
  - Hypertension [Unknown]
  - Injection site mass [Unknown]
  - Injection site bruising [Unknown]
  - Injection site discomfort [Unknown]
  - Diarrhoea [Not Recovered/Not Resolved]
  - Injection site pain [Unknown]
